FAERS Safety Report 23103446 (Version 1)
Quarter: 2023Q4

REPORT INFORMATION
  Report Type: Spontaneous
  Country: CN (occurrence: CN)
  Receive Date: 20231025
  Receipt Date: 20231025
  Transmission Date: 20240110
  Serious: Yes (Life-Threatening, Other)
  Sender: FDA-Public Use
  Company Number: CN-SA-SAC20231023000472

PATIENT
  Age: 88 Year
  Sex: Female
  Weight: 50 kg

DRUGS (1)
  1. ZOLPIDEM TARTRATE [Suspect]
     Active Substance: ZOLPIDEM TARTRATE
     Indication: Suicide attempt
     Dosage: 21 DF, 1X
     Route: 048
     Dates: start: 20230701, end: 20230701

REACTIONS (17)
  - Toxicity to various agents [Recovering/Resolving]
  - Delirium [Recovering/Resolving]
  - Loss of consciousness [Recovering/Resolving]
  - Coma [Recovering/Resolving]
  - Cerebral disorder [Recovering/Resolving]
  - White matter lesion [Recovering/Resolving]
  - Pulmonary mass [Recovering/Resolving]
  - Aortic arteriosclerosis [Recovering/Resolving]
  - Arteriosclerosis coronary artery [Recovering/Resolving]
  - Sinus bradycardia [Recovering/Resolving]
  - Electrocardiogram PR prolongation [Recovering/Resolving]
  - Electrocardiogram Q wave abnormal [Recovering/Resolving]
  - Electrocardiogram QT prolonged [Recovering/Resolving]
  - Pneumonia aspiration [Recovering/Resolving]
  - Productive cough [Recovering/Resolving]
  - Intentional overdose [Unknown]
  - Product use in unapproved indication [Unknown]

NARRATIVE: CASE EVENT DATE: 20230701
